FAERS Safety Report 7360227-6 (Version None)
Quarter: 2011Q1

REPORT INFORMATION
  Report Type: 
  Country: None (occurrence: None)
  Receive Date: 20110307
  Receipt Date: 20110226
  Transmission Date: 20110831
  Serious: Yes (Hospitalization)
  Sender: FDA-Public Use
  Company Number: OMPQ-NO-1103S-0248

PATIENT
  Age: 23 Year
  Sex: Female

DRUGS (1)
  1. OMNIPAQUE 70 [Suspect]
     Indication: HEADACHE
     Dosage: 30 ML, SINGLE DOSE, I.V.
     Route: 042
     Dates: start: 20110226, end: 20110226

REACTIONS (4)
  - HEADACHE [None]
  - BURNING SENSATION [None]
  - NECK PAIN [None]
  - CONTRAST MEDIA REACTION [None]
